FAERS Safety Report 6024640-1 (Version None)
Quarter: 2008Q4

REPORT INFORMATION
  Report Type: 
  Country: None (occurrence: None)
  Receive Date: 20081230
  Receipt Date: 20081230
  Transmission Date: 20090506
  Serious: No
  Sender: FDA-Public Use
  Company Number: None

PATIENT
  Sex: Male

DRUGS (1)
  1. ANCEF [Suspect]
     Indication: PROPHYLAXIS
     Dosage: 1 GRAM IVPB
     Route: 042
     Dates: start: 20081124

REACTIONS (1)
  - VOMITING [None]
